FAERS Safety Report 7133660-5 (Version None)
Quarter: 2010Q4

REPORT INFORMATION
  Report Type: 
  Country: None (occurrence: None)
  Receive Date: 20101202
  Receipt Date: 20101123
  Transmission Date: 20110411
  Serious: Yes (Other)
  Sender: FDA-Public Use
  Company Number: CA-BAYER-201042126NA

PATIENT

DRUGS (1)
  1. MIRENA [Suspect]
     Indication: CONTRACEPTION
     Dosage: 20 A?G (DAILY DOSE), , INTRA-UTERINE
     Route: 015
     Dates: start: 20101001

REACTIONS (1)
  - DEVICE DISLOCATION [None]
